FAERS Safety Report 6336654-2 (Version None)
Quarter: 2009Q3

REPORT INFORMATION
  Report Type: 
  Country: None (occurrence: None)
  Receive Date: 20090831
  Receipt Date: 20090831
  Transmission Date: 20100115
  Serious: No
  Sender: FDA-Public Use
  Company Number: None

PATIENT
  Age: 70 Year
  Sex: Female
  Weight: 58.9676 kg

DRUGS (1)
  1. PLAVIX [Suspect]
     Indication: MEDICAL DEVICE IMPLANTATION
     Dates: start: 20030401, end: 20030415

REACTIONS (2)
  - ASTHENIA [None]
  - DOCUMENTED HYPERSENSITIVITY TO ADMINISTERED DRUG [None]
